FAERS Safety Report 4454449-1 (Version None)
Quarter: 2004Q3

REPORT INFORMATION
  Report Type: 
  Country: None (occurrence: None)
  Receive Date: 20040917
  Receipt Date: 20040917
  Transmission Date: 20050211
  Serious: No
  Sender: FDA-Public Use
  Company Number: None

PATIENT
  Sex: Female
  Weight: 72.5755 kg

DRUGS (1)
  1. DEFEROXAMINE    2GM    HOSPIRA [Suspect]
     Indication: BLOOD IRON INCREASED
     Dosage: 1 GM 5/7 DAYS W/K SUBCUTANEOUS
     Route: 058
     Dates: start: 20040601, end: 20040722

REACTIONS (4)
  - CONTUSION [None]
  - INJECTION SITE PAIN [None]
  - PHARMACEUTICAL PRODUCT COMPLAINT [None]
  - SWELLING [None]
